FAERS Safety Report 5422817-7 (Version None)
Quarter: 2007Q3

REPORT INFORMATION
  Report Type: 
  Country: None (occurrence: None)
  Receive Date: 20070822
  Receipt Date: 20070817
  Transmission Date: 20080115
  Serious: Yes (Congenital Anomaly)
  Sender: FDA-Public Use
  Company Number: DE-SHR-DE-2006-010122

PATIENT

DRUGS (1)
  1. BETAFERON [Suspect]
     Dates: end: 20060428

REACTIONS (1)
  - TALIPES [None]
